FAERS Safety Report 4927684-3 (Version None)
Quarter: 2006Q1

REPORT INFORMATION
  Report Type: 
  Country: None (occurrence: None)
  Receive Date: 20060228
  Receipt Date: 20030605
  Transmission Date: 20060701
  Serious: Yes (Hospitalization, Disabling)
  Sender: FDA-Public Use
  Company Number: US-MERCK-0306USA00820

PATIENT
  Age: 49 Year
  Sex: Female
  Weight: 83 kg

DRUGS (11)
  1. VIOXX [Suspect]
     Indication: BACK PAIN
     Route: 048
     Dates: start: 19991204, end: 20010801
  2. MOTRIN [Concomitant]
     Route: 065
     Dates: start: 20000810, end: 20000810
  3. MOTRIN [Concomitant]
     Route: 065
     Dates: start: 20000801
  4. CELEBREX [Concomitant]
     Route: 065
  5. SOMA [Concomitant]
     Route: 065
  6. ULTRAM [Concomitant]
     Route: 065
  7. ALTACE [Concomitant]
     Route: 065
     Dates: start: 20000831
  8. ZYRTEC [Concomitant]
     Route: 065
  9. HYDROCHLOROTHIAZIDE AND TRIAMTERENE [Concomitant]
     Route: 065
  10. CALCIUM (UNSPECIFIED) [Concomitant]
     Route: 065
  11. ESTRADIOL [Concomitant]
     Route: 065

REACTIONS (21)
  - ACUTE SINUSITIS [None]
  - ADVERSE EVENT [None]
  - BACK DISORDER [None]
  - BACK PAIN [None]
  - BRONCHITIS [None]
  - DERMAL CYST [None]
  - FAMILY STRESS [None]
  - HEADACHE [None]
  - HYPERTENSION [None]
  - HYPOAESTHESIA [None]
  - INJURY [None]
  - INTERVERTEBRAL DISC DEGENERATION [None]
  - NECK PAIN [None]
  - OEDEMA PERIPHERAL [None]
  - PLANTAR FASCIITIS [None]
  - PSEUDOMONAS INFECTION [None]
  - RHINITIS [None]
  - SHOULDER PAIN [None]
  - TEMPOROMANDIBULAR JOINT SYNDROME [None]
  - TOBACCO ABUSE [None]
  - UPPER RESPIRATORY TRACT INFECTION [None]
